FAERS Safety Report 7356030-3 (Version None)
Quarter: 2011Q1

REPORT INFORMATION
  Report Type: 
  Country: None (occurrence: None)
  Receive Date: 20110316
  Receipt Date: 20110303
  Transmission Date: 20110831
  Serious: Yes (Other)
  Sender: FDA-Public Use
  Company Number: US-VIROPHARMA INCORPORATED-20110303CINRY1853

PATIENT
  Sex: Male

DRUGS (2)
  1. DANAZOL [Suspect]
     Indication: PRODUCT USED FOR UNKNOWN INDICATION
  2. CINRYZE [Suspect]
     Indication: HEREDITARY ANGIOEDEMA

REACTIONS (2)
  - LIVER FUNCTION TEST ABNORMAL [None]
  - HEREDITARY ANGIOEDEMA [None]
